FAERS Safety Report 10081894 (Version 2)
Quarter: 2014Q2

REPORT INFORMATION
  Report Type: Spontaneous
  Country: US (occurrence: US)
  Receive Date: 20140416
  Receipt Date: 20140519
  Transmission Date: 20141212
  Serious: Yes (Death)
  Sender: FDA-Public Use
  Company Number: US-GLAXOSMITHKLINE-A1068685A

PATIENT
  Age: 77 Year
  Sex: Male

DRUGS (7)
  1. VOTRIENT [Suspect]
     Indication: RENAL CELL CARCINOMA
     Dosage: 800MG PER DAY
     Route: 048
     Dates: start: 201403
  2. ACIDOPHILUS [Concomitant]
  3. COLACE [Concomitant]
  4. CALCIUM SUPPLEMENT [Concomitant]
  5. VITAMIN B12 [Concomitant]
  6. FOLIC ACID [Concomitant]
  7. LAXATIVE [Concomitant]

REACTIONS (1)
  - Death [Fatal]
